FAERS Safety Report 12924387 (Version 28)
Quarter: 2021Q1

REPORT INFORMATION
  Report Type: Spontaneous
  Country: CA (occurrence: CA)
  Receive Date: 20161108
  Receipt Date: 20210119
  Transmission Date: 20210419
  Serious: Yes (Life-Threatening, Other)
  Sender: FDA-Public Use
  Company Number: CA-JNJFOC-20161101768

PATIENT
  Age: 45 Year
  Sex: Female

DRUGS (249)
  1. CELLCEPT [Suspect]
     Active Substance: MYCOPHENOLATE MOFETIL\MYCOPHENOLATE MOFETIL HYDROCHLORIDE
     Route: 048
  2. ENBREL [Suspect]
     Active Substance: ETANERCEPT
     Route: 058
  3. ENBREL [Suspect]
     Active Substance: ETANERCEPT
     Route: 058
  4. ENBREL [Suspect]
     Active Substance: ETANERCEPT
     Route: 048
  5. PROGRAF [Suspect]
     Active Substance: TACROLIMUS
     Route: 048
  6. PROGRAF [Suspect]
     Active Substance: TACROLIMUS
     Route: 048
  7. PROGRAF [Suspect]
     Active Substance: TACROLIMUS
     Route: 048
  8. PROGRAF [Suspect]
     Active Substance: TACROLIMUS
     Route: 048
  9. PROGRAF [Suspect]
     Active Substance: TACROLIMUS
     Route: 048
  10. PROGRAF [Suspect]
     Active Substance: TACROLIMUS
     Route: 048
  11. PROGRAF [Suspect]
     Active Substance: TACROLIMUS
     Route: 048
  12. PROGRAF [Suspect]
     Active Substance: TACROLIMUS
     Route: 048
  13. PROGRAF [Suspect]
     Active Substance: TACROLIMUS
     Route: 048
  14. PROGRAF [Suspect]
     Active Substance: TACROLIMUS
     Route: 048
  15. ZENAPAX [Suspect]
     Active Substance: DACLIZUMAB
     Route: 042
  16. ENBREL [Suspect]
     Active Substance: ETANERCEPT
     Route: 058
  17. ENBREL [Suspect]
     Active Substance: ETANERCEPT
     Route: 058
  18. ANTITHYMOCYTE IMMUNOGLOBULIN (HORSE) [Suspect]
     Active Substance: EQUINE THYMOCYTE IMMUNE GLOBULIN
     Indication: TRANSPLANT
     Route: 005
  19. TACROLIMUS. [Suspect]
     Active Substance: TACROLIMUS
     Route: 065
  20. TACROLIMUS. [Suspect]
     Active Substance: TACROLIMUS
     Route: 065
  21. ANTITHYMOCYTE IMMUNOGLOBULIN [Suspect]
     Active Substance: THYMOCYTE IMMUNE GLOBULIN NOS
     Route: 065
  22. MYCOPHENOLATE [Suspect]
     Active Substance: MYCOPHENOLIC ACID
     Route: 048
  23. ENBREL [Suspect]
     Active Substance: ETANERCEPT
     Route: 048
  24. ENBREL [Suspect]
     Active Substance: ETANERCEPT
     Route: 048
  25. ENBREL [Suspect]
     Active Substance: ETANERCEPT
     Route: 048
  26. DACLIZUMAB [Suspect]
     Active Substance: DACLIZUMAB
     Route: 042
  27. MYCOPHENOLATE MOFETIL. [Suspect]
     Active Substance: MYCOPHENOLATE MOFETIL
     Route: 048
  28. MYCOPHENOLATE MOFETIL. [Suspect]
     Active Substance: MYCOPHENOLATE MOFETIL
     Route: 048
  29. MYCOPHENOLATE MOFETIL. [Suspect]
     Active Substance: MYCOPHENOLATE MOFETIL
     Route: 048
  30. MYCOPHENOLATE MOFETIL. [Suspect]
     Active Substance: MYCOPHENOLATE MOFETIL
     Route: 048
  31. NEORAL [Suspect]
     Active Substance: CYCLOSPORINE
     Route: 065
  32. MYCOPHENOLATE MOFETIL. [Suspect]
     Active Substance: MYCOPHENOLATE MOFETIL
     Indication: TRANSPLANT
     Route: 048
  33. MYCOPHENOLATE MOFETIL. [Suspect]
     Active Substance: MYCOPHENOLATE MOFETIL
     Route: 048
  34. ANTITHYMOCYTE IMMUNOGLOBULIN (RABBIT) [Suspect]
     Active Substance: LAPINE T-LYMPHOCYTE IMMUNE GLOBULIN
     Indication: PRODUCT USED FOR UNKNOWN INDICATION
     Route: 005
  35. CELLCEPT [Suspect]
     Active Substance: MYCOPHENOLATE MOFETIL\MYCOPHENOLATE MOFETIL HYDROCHLORIDE
     Route: 048
  36. ENBREL [Suspect]
     Active Substance: ETANERCEPT
     Route: 058
  37. ENBREL [Suspect]
     Active Substance: ETANERCEPT
     Route: 058
  38. ENBREL [Suspect]
     Active Substance: ETANERCEPT
     Route: 058
  39. DACLIZUMAB [Suspect]
     Active Substance: DACLIZUMAB
     Dosage: 5 MG/ML
     Route: 042
  40. ANTITHYMOCYTE IMMUNOGLOBULIN (RABBIT) [Suspect]
     Active Substance: LAPINE T-LYMPHOCYTE IMMUNE GLOBULIN
     Indication: TRANSPLANT
     Route: 005
  41. ANTITHYMOCYTE IMMUNOGLOBULIN (RABBIT) [Suspect]
     Active Substance: LAPINE T-LYMPHOCYTE IMMUNE GLOBULIN
     Route: 005
  42. ANTITHYMOCYTE IMMUNOGLOBULIN (RABBIT) [Suspect]
     Active Substance: LAPINE T-LYMPHOCYTE IMMUNE GLOBULIN
     Route: 005
  43. TACROLIMUS. [Suspect]
     Active Substance: TACROLIMUS
     Route: 048
  44. TACROLIMUS. [Suspect]
     Active Substance: TACROLIMUS
     Route: 048
  45. TACROLIMUS. [Suspect]
     Active Substance: TACROLIMUS
     Route: 048
  46. PROGRAF [Suspect]
     Active Substance: TACROLIMUS
     Route: 048
  47. PROGRAF [Suspect]
     Active Substance: TACROLIMUS
     Route: 048
  48. PROGRAF [Suspect]
     Active Substance: TACROLIMUS
     Route: 048
  49. PROGRAF [Suspect]
     Active Substance: TACROLIMUS
     Route: 065
  50. PROGRAF [Suspect]
     Active Substance: TACROLIMUS
     Route: 048
  51. PROGRAF [Suspect]
     Active Substance: TACROLIMUS
     Route: 048
  52. PROGRAF [Suspect]
     Active Substance: TACROLIMUS
     Route: 048
  53. PROGRAF [Suspect]
     Active Substance: TACROLIMUS
     Route: 048
  54. PROGRAF [Suspect]
     Active Substance: TACROLIMUS
     Route: 048
  55. PROGRAF [Suspect]
     Active Substance: TACROLIMUS
     Route: 048
  56. ENBREL [Suspect]
     Active Substance: ETANERCEPT
     Route: 058
  57. ENBREL [Suspect]
     Active Substance: ETANERCEPT
     Route: 058
  58. ANTITHYMOCYTE IMMUNOGLOBULIN (HORSE) [Suspect]
     Active Substance: EQUINE THYMOCYTE IMMUNE GLOBULIN
     Route: 005
  59. IMMUNOGLOBULIN ANTI?HUMAN?LYMPHOCYTIC [Suspect]
     Active Substance: THYMOCYTE IMMUNE GLOBULIN NOS
     Route: 065
  60. IMMUNOGLOBULIN ANTI?HUMAN?LYMPHOCYTIC [Suspect]
     Active Substance: THYMOCYTE IMMUNE GLOBULIN NOS
     Route: 065
  61. ANTILYMPHOCYTE IMMUNOGLOBULIN (HORSE) [Suspect]
     Active Substance: EQUINE THYMOCYTE IMMUNE GLOBULIN
     Indication: TRANSPLANT REJECTION
     Route: 065
  62. GLICLAZIDE [Suspect]
     Active Substance: GLICLAZIDE
     Indication: PRODUCT USED FOR UNKNOWN INDICATION
     Route: 065
  63. ENBREL [Suspect]
     Active Substance: ETANERCEPT
     Indication: PRODUCT USED FOR UNKNOWN INDICATION
     Route: 048
  64. ENBREL [Suspect]
     Active Substance: ETANERCEPT
     Route: 048
  65. TEMAZEPAM. [Suspect]
     Active Substance: TEMAZEPAM
     Indication: PRODUCT USED FOR UNKNOWN INDICATION
     Route: 042
  66. ESBRIET [Suspect]
     Active Substance: PIRFENIDONE
     Indication: TRANSPLANT
     Route: 065
  67. MYCOPHENOLATE MOFETIL. [Suspect]
     Active Substance: MYCOPHENOLATE MOFETIL
     Route: 048
  68. ORENCIA [Suspect]
     Active Substance: ABATACEPT
     Indication: PRODUCT USED FOR UNKNOWN INDICATION
     Route: 065
  69. ANTITHYMOCYTE IMMUNOGLOBULIN (RABBIT) [Suspect]
     Active Substance: LAPINE T-LYMPHOCYTE IMMUNE GLOBULIN
     Route: 005
  70. SULFASALAZINE. [Suspect]
     Active Substance: SULFASALAZINE
     Indication: RHEUMATOID ARTHRITIS
     Route: 065
  71. CELLCEPT [Suspect]
     Active Substance: MYCOPHENOLATE MOFETIL\MYCOPHENOLATE MOFETIL HYDROCHLORIDE
     Indication: TRANSPLANT
     Route: 048
  72. RAPAMUNE [Suspect]
     Active Substance: SIROLIMUS
     Indication: TRANSPLANT
     Route: 042
  73. ENBREL [Suspect]
     Active Substance: ETANERCEPT
     Route: 058
  74. ENBREL [Suspect]
     Active Substance: ETANERCEPT
     Route: 058
  75. ENBREL [Suspect]
     Active Substance: ETANERCEPT
     Route: 058
  76. ENBREL [Suspect]
     Active Substance: ETANERCEPT
     Route: 058
  77. ENBREL [Suspect]
     Active Substance: ETANERCEPT
     Route: 048
  78. DACLIZUMAB [Suspect]
     Active Substance: DACLIZUMAB
     Route: 042
  79. TACROLIMUS. [Suspect]
     Active Substance: TACROLIMUS
     Route: 048
  80. TACROLIMUS. [Suspect]
     Active Substance: TACROLIMUS
     Route: 048
  81. TACROLIMUS. [Suspect]
     Active Substance: TACROLIMUS
     Route: 048
  82. TACROLIMUS. [Suspect]
     Active Substance: TACROLIMUS
     Route: 048
  83. PROGRAF [Suspect]
     Active Substance: TACROLIMUS
     Route: 048
  84. PROGRAF [Suspect]
     Active Substance: TACROLIMUS
     Route: 048
  85. PROGRAF [Suspect]
     Active Substance: TACROLIMUS
     Route: 048
  86. PROGRAF [Suspect]
     Active Substance: TACROLIMUS
     Route: 048
  87. PROGRAF [Suspect]
     Active Substance: TACROLIMUS
     Route: 065
  88. ZENAPAX [Suspect]
     Active Substance: DACLIZUMAB
     Route: 042
  89. ENBREL [Suspect]
     Active Substance: ETANERCEPT
     Route: 058
  90. TACROLIMUS. [Suspect]
     Active Substance: TACROLIMUS
     Route: 048
  91. ENBREL [Suspect]
     Active Substance: ETANERCEPT
     Route: 048
  92. ANTITHYMOCYTE IMMUNOGLOBULIN (RABBIT) [Suspect]
     Active Substance: LAPINE T-LYMPHOCYTE IMMUNE GLOBULIN
     Indication: TRANSPLANT
     Route: 058
  93. CICLOSPORIN [Suspect]
     Active Substance: CYCLOSPORINE
     Indication: TRANSPLANT
     Route: 065
  94. ESBRIET [Suspect]
     Active Substance: PIRFENIDONE
     Route: 065
  95. MYCOPHENOLATE MOFETIL. [Suspect]
     Active Substance: MYCOPHENOLATE MOFETIL
     Route: 065
  96. MYCOPHENOLATE MOFETIL. [Suspect]
     Active Substance: MYCOPHENOLATE MOFETIL
     Route: 048
  97. METHOTREXATE. [Suspect]
     Active Substance: METHOTREXATE
     Indication: PRODUCT USED FOR UNKNOWN INDICATION
     Route: 065
  98. GLICLAZIDE [Suspect]
     Active Substance: GLICLAZIDE
     Indication: PRODUCT USED FOR UNKNOWN INDICATION
     Route: 042
  99. ANTITHYMOCYTE IMMUNOGLOBULIN (RABBIT) [Suspect]
     Active Substance: LAPINE T-LYMPHOCYTE IMMUNE GLOBULIN
     Route: 005
  100. CELLCEPT [Suspect]
     Active Substance: MYCOPHENOLATE MOFETIL\MYCOPHENOLATE MOFETIL HYDROCHLORIDE
     Route: 048
  101. CELLCEPT [Suspect]
     Active Substance: MYCOPHENOLATE MOFETIL\MYCOPHENOLATE MOFETIL HYDROCHLORIDE
     Route: 048
  102. ENBREL [Suspect]
     Active Substance: ETANERCEPT
     Route: 058
  103. ENBREL [Suspect]
     Active Substance: ETANERCEPT
     Route: 058
  104. ENBREL [Suspect]
     Active Substance: ETANERCEPT
     Route: 058
  105. DACLIZUMAB [Suspect]
     Active Substance: DACLIZUMAB
     Route: 042
  106. PROGRAF [Suspect]
     Active Substance: TACROLIMUS
     Route: 048
  107. PROGRAF [Suspect]
     Active Substance: TACROLIMUS
     Route: 048
  108. PROGRAF [Suspect]
     Active Substance: TACROLIMUS
     Route: 048
  109. PROGRAF [Suspect]
     Active Substance: TACROLIMUS
     Route: 065
  110. PROGRAF [Suspect]
     Active Substance: TACROLIMUS
     Route: 048
  111. PROGRAF [Suspect]
     Active Substance: TACROLIMUS
     Route: 048
  112. PROGRAF [Suspect]
     Active Substance: TACROLIMUS
     Route: 048
  113. ZENAPAX [Suspect]
     Active Substance: DACLIZUMAB
     Route: 042
  114. TACROLIMUS. [Suspect]
     Active Substance: TACROLIMUS
     Route: 065
  115. ANTITHYMOCYTE IMMUNOGLOBULIN [Suspect]
     Active Substance: THYMOCYTE IMMUNE GLOBULIN NOS
     Indication: TRANSPLANT
     Route: 065
  116. ANTITHYMOCYTE IMMUNOGLOBULIN [Suspect]
     Active Substance: THYMOCYTE IMMUNE GLOBULIN NOS
     Route: 065
  117. PROGRAF [Suspect]
     Active Substance: TACROLIMUS
     Route: 065
  118. CELLCEPT [Suspect]
     Active Substance: MYCOPHENOLATE MOFETIL\MYCOPHENOLATE MOFETIL HYDROCHLORIDE
     Route: 065
  119. MYCOPHENOLATE MOFETIL. [Suspect]
     Active Substance: MYCOPHENOLATE MOFETIL
     Route: 048
  120. MYCOPHENOLATE MOFETIL. [Suspect]
     Active Substance: MYCOPHENOLATE MOFETIL
     Route: 048
  121. NEORAL [Suspect]
     Active Substance: CYCLOSPORINE
     Route: 048
  122. THYMOGLOBULIN [Suspect]
     Active Substance: LAPINE T-LYMPHOCYTE IMMUNE GLOBULIN
     Indication: TRANSPLANT
     Route: 042
  123. ANTITHYMOCYTE IMMUNOGLOBULIN (RABBIT) [Suspect]
     Active Substance: LAPINE T-LYMPHOCYTE IMMUNE GLOBULIN
     Route: 005
  124. CELLCEPT [Suspect]
     Active Substance: MYCOPHENOLATE MOFETIL\MYCOPHENOLATE MOFETIL HYDROCHLORIDE
     Route: 048
  125. RAPAMUNE [Suspect]
     Active Substance: SIROLIMUS
     Route: 065
  126. NEORAL [Suspect]
     Active Substance: CYCLOSPORINE
     Route: 065
  127. CELLCEPT [Suspect]
     Active Substance: MYCOPHENOLATE MOFETIL\MYCOPHENOLATE MOFETIL HYDROCHLORIDE
     Indication: TRANSPLANT
     Route: 048
  128. ENBREL [Suspect]
     Active Substance: ETANERCEPT
     Route: 048
  129. ENBREL [Suspect]
     Active Substance: ETANERCEPT
     Route: 065
  130. ENBREL [Suspect]
     Active Substance: ETANERCEPT
     Route: 065
  131. TACROLIMUS. [Suspect]
     Active Substance: TACROLIMUS
     Route: 048
  132. TACROLIMUS. [Suspect]
     Active Substance: TACROLIMUS
     Route: 048
  133. PROGRAF [Suspect]
     Active Substance: TACROLIMUS
     Indication: TRANSPLANT
     Route: 048
  134. PROGRAF [Suspect]
     Active Substance: TACROLIMUS
     Route: 048
  135. PROGRAF [Suspect]
     Active Substance: TACROLIMUS
     Route: 048
  136. PROGRAF [Suspect]
     Active Substance: TACROLIMUS
     Route: 048
  137. PROGRAF [Suspect]
     Active Substance: TACROLIMUS
     Route: 048
  138. PROGRAF [Suspect]
     Active Substance: TACROLIMUS
     Route: 048
  139. PROGRAF [Suspect]
     Active Substance: TACROLIMUS
     Route: 048
  140. PROGRAF [Suspect]
     Active Substance: TACROLIMUS
     Route: 048
  141. PROGRAF [Suspect]
     Active Substance: TACROLIMUS
     Indication: TRANSPLANT
     Route: 048
  142. PROGRAF [Suspect]
     Active Substance: TACROLIMUS
     Route: 048
  143. PROGRAF [Suspect]
     Active Substance: TACROLIMUS
     Route: 048
  144. PROGRAF [Suspect]
     Active Substance: TACROLIMUS
     Route: 048
  145. ENBREL [Suspect]
     Active Substance: ETANERCEPT
     Indication: PRODUCT USED FOR UNKNOWN INDICATION
     Route: 058
  146. TACROLIMUS. [Suspect]
     Active Substance: TACROLIMUS
     Indication: TRANSPLANT
     Route: 048
  147. IMMUNOGLOBULIN ANTI?HUMAN?LYMPHOCYTIC [Suspect]
     Active Substance: THYMOCYTE IMMUNE GLOBULIN NOS
     Indication: TRANSPLANT
     Route: 065
  148. MYCOPHENOLATE [Suspect]
     Active Substance: MYCOPHENOLIC ACID
     Route: 048
  149. DACLIZUMAB [Suspect]
     Active Substance: DACLIZUMAB
     Indication: TRANSPLANT
     Route: 042
  150. PROGRAF [Suspect]
     Active Substance: TACROLIMUS
     Indication: PRODUCT USED FOR UNKNOWN INDICATION
     Route: 065
  151. PROGRAF [Suspect]
     Active Substance: TACROLIMUS
     Route: 065
  152. CELLCEPT [Suspect]
     Active Substance: MYCOPHENOLATE MOFETIL\MYCOPHENOLATE MOFETIL HYDROCHLORIDE
     Route: 065
  153. MYCOPHENOLATE MOFETIL. [Suspect]
     Active Substance: MYCOPHENOLATE MOFETIL
     Route: 048
  154. NEORAL [Suspect]
     Active Substance: CYCLOSPORINE
     Route: 048
  155. ARAVA [Suspect]
     Active Substance: LEFLUNOMIDE
     Indication: PRODUCT USED FOR UNKNOWN INDICATION
     Route: 065
  156. CELLCEPT [Suspect]
     Active Substance: MYCOPHENOLATE MOFETIL\MYCOPHENOLATE MOFETIL HYDROCHLORIDE
     Route: 048
  157. ENBREL [Suspect]
     Active Substance: ETANERCEPT
     Indication: PRODUCT USED FOR UNKNOWN INDICATION
     Route: 058
  158. ENBREL [Suspect]
     Active Substance: ETANERCEPT
     Route: 058
  159. ENBREL [Suspect]
     Active Substance: ETANERCEPT
     Route: 058
  160. ENBREL [Suspect]
     Active Substance: ETANERCEPT
     Route: 058
  161. DACLIZUMAB [Suspect]
     Active Substance: DACLIZUMAB
     Route: 042
  162. DACLIZUMAB [Suspect]
     Active Substance: DACLIZUMAB
     Route: 042
  163. PROGRAF [Suspect]
     Active Substance: TACROLIMUS
     Route: 048
  164. PROGRAF [Suspect]
     Active Substance: TACROLIMUS
     Route: 048
  165. PROGRAF [Suspect]
     Active Substance: TACROLIMUS
     Route: 048
  166. PROGRAF [Suspect]
     Active Substance: TACROLIMUS
     Route: 048
  167. PROGRAF [Suspect]
     Active Substance: TACROLIMUS
     Route: 048
  168. PROGRAF [Suspect]
     Active Substance: TACROLIMUS
     Route: 048
  169. PROGRAF [Suspect]
     Active Substance: TACROLIMUS
     Route: 048
  170. PROGRAF [Suspect]
     Active Substance: TACROLIMUS
     Route: 048
  171. PROGRAF [Suspect]
     Active Substance: TACROLIMUS
     Route: 048
  172. ZENAPAX [Suspect]
     Active Substance: DACLIZUMAB
     Route: 042
  173. ENBREL [Suspect]
     Active Substance: ETANERCEPT
     Route: 058
  174. TACROLIMUS. [Suspect]
     Active Substance: TACROLIMUS
     Route: 065
  175. IMMUNOGLOBULIN ANTI?HUMAN?LYMPHOCYTIC [Suspect]
     Active Substance: THYMOCYTE IMMUNE GLOBULIN NOS
     Route: 065
  176. ANTILYMPHOCYTE IMMUNOGLOBULIN (HORSE) [Suspect]
     Active Substance: EQUINE THYMOCYTE IMMUNE GLOBULIN
     Route: 065
  177. ANTITHYMOCYTE IMMUNOGLOBULIN [Suspect]
     Active Substance: THYMOCYTE IMMUNE GLOBULIN NOS
     Route: 065
  178. MYCOPHENOLATE [Suspect]
     Active Substance: MYCOPHENOLIC ACID
     Indication: TRANSPLANT
     Route: 048
  179. ENBREL [Suspect]
     Active Substance: ETANERCEPT
     Route: 048
  180. PROGRAF [Suspect]
     Active Substance: TACROLIMUS
  181. PROGRAF [Suspect]
     Active Substance: TACROLIMUS
     Route: 048
  182. NEORAL [Suspect]
     Active Substance: CYCLOSPORINE
     Indication: TRANSPLANT
     Route: 048
  183. HUMIRA [Suspect]
     Active Substance: ADALIMUMAB
     Indication: PRODUCT USED FOR UNKNOWN INDICATION
     Route: 058
  184. TOCILIZUMAB. [Suspect]
     Active Substance: TOCILIZUMAB
  185. ANTITHYMOCYTE IMMUNOGLOBULIN (RABBIT) [Suspect]
     Active Substance: LAPINE T-LYMPHOCYTE IMMUNE GLOBULIN
     Indication: TRANSPLANT
     Route: 065
  186. ANTITHYMOCYTE IMMUNOGLOBULIN (RABBIT) [Suspect]
     Active Substance: LAPINE T-LYMPHOCYTE IMMUNE GLOBULIN
     Route: 065
  187. ANTITHYMOCYTE IMMUNOGLOBULIN (RABBIT) [Suspect]
     Active Substance: LAPINE T-LYMPHOCYTE IMMUNE GLOBULIN
     Route: 005
  188. ANTITHYMOCYTE IMMUNOGLOBULIN (RABBIT) [Suspect]
     Active Substance: LAPINE T-LYMPHOCYTE IMMUNE GLOBULIN
     Indication: PRODUCT USED FOR UNKNOWN INDICATION
     Route: 058
  189. CELLCEPT [Suspect]
     Active Substance: MYCOPHENOLATE MOFETIL\MYCOPHENOLATE MOFETIL HYDROCHLORIDE
     Route: 048
  190. CELLCEPT [Suspect]
     Active Substance: MYCOPHENOLATE MOFETIL\MYCOPHENOLATE MOFETIL HYDROCHLORIDE
     Route: 048
  191. CELLCEPT [Suspect]
     Active Substance: MYCOPHENOLATE MOFETIL\MYCOPHENOLATE MOFETIL HYDROCHLORIDE
     Route: 048
  192. NEORAL [Suspect]
     Active Substance: CYCLOSPORINE
     Indication: TRANSPLANT
     Route: 065
  193. CELLCEPT [Suspect]
     Active Substance: MYCOPHENOLATE MOFETIL\MYCOPHENOLATE MOFETIL HYDROCHLORIDE
     Route: 048
  194. ENBREL [Suspect]
     Active Substance: ETANERCEPT
     Route: 058
  195. ENBREL [Suspect]
     Active Substance: ETANERCEPT
     Route: 058
  196. ENBREL [Suspect]
     Active Substance: ETANERCEPT
     Route: 065
  197. ANTITHYMOCYTE IMMUNOGLOBULIN (RABBIT) [Suspect]
     Active Substance: LAPINE T-LYMPHOCYTE IMMUNE GLOBULIN
     Route: 005
  198. TACROLIMUS. [Suspect]
     Active Substance: TACROLIMUS
     Route: 048
  199. TACROLIMUS. [Suspect]
     Active Substance: TACROLIMUS
     Route: 048
  200. PROGRAF [Suspect]
     Active Substance: TACROLIMUS
     Route: 048
  201. PROGRAF [Suspect]
     Active Substance: TACROLIMUS
     Route: 048
  202. PROGRAF [Suspect]
     Active Substance: TACROLIMUS
     Route: 048
  203. PROGRAF [Suspect]
     Active Substance: TACROLIMUS
     Route: 048
  204. PROGRAF [Suspect]
     Active Substance: TACROLIMUS
     Route: 048
  205. PROGRAF [Suspect]
     Active Substance: TACROLIMUS
     Route: 048
  206. ZENAPAX [Suspect]
     Active Substance: DACLIZUMAB
     Indication: PRODUCT USED FOR UNKNOWN INDICATION
     Dosage: 5 MG/ML
     Route: 042
  207. ENBREL [Suspect]
     Active Substance: ETANERCEPT
     Route: 058
  208. ENBREL [Suspect]
     Active Substance: ETANERCEPT
     Route: 058
  209. TACROLIMUS. [Suspect]
     Active Substance: TACROLIMUS
     Route: 065
  210. TACROLIMUS. [Suspect]
     Active Substance: TACROLIMUS
     Route: 065
  211. MYCOPHENOLATE [Suspect]
     Active Substance: MYCOPHENOLIC ACID
     Route: 048
  212. MYCOPHENOLATE [Suspect]
     Active Substance: MYCOPHENOLIC ACID
     Route: 065
  213. ENBREL [Suspect]
     Active Substance: ETANERCEPT
     Route: 048
  214. DACLIZUMAB [Suspect]
     Active Substance: DACLIZUMAB
     Route: 042
  215. DACLIZUMAB [Suspect]
     Active Substance: DACLIZUMAB
     Route: 065
  216. PROGRAF [Suspect]
     Active Substance: TACROLIMUS
     Route: 048
  217. PROGRAF [Suspect]
     Active Substance: TACROLIMUS
     Route: 048
  218. MYCOPHENOLATE MOFETIL. [Suspect]
     Active Substance: MYCOPHENOLATE MOFETIL
     Indication: TRANSPLANT
     Route: 048
  219. MYCOPHENOLATE MOFETIL. [Suspect]
     Active Substance: MYCOPHENOLATE MOFETIL
     Route: 065
  220. MYCOPHENOLATE MOFETIL. [Suspect]
     Active Substance: MYCOPHENOLATE MOFETIL
     Route: 065
  221. DACLIZUMAB [Suspect]
     Active Substance: DACLIZUMAB
     Indication: PRODUCT USED FOR UNKNOWN INDICATION
     Route: 042
  222. MYCOPHENOLATE MOFETIL. [Suspect]
     Active Substance: MYCOPHENOLATE MOFETIL
     Route: 048
  223. REMICADE [Suspect]
     Active Substance: INFLIXIMAB
     Indication: TRANSPLANT
     Route: 042
  224. CELLCEPT [Suspect]
     Active Substance: MYCOPHENOLATE MOFETIL\MYCOPHENOLATE MOFETIL HYDROCHLORIDE
     Route: 048
  225. ENBREL [Suspect]
     Active Substance: ETANERCEPT
     Route: 058
  226. ENBREL [Suspect]
     Active Substance: ETANERCEPT
     Route: 058
  227. ENBREL [Suspect]
     Active Substance: ETANERCEPT
     Route: 058
  228. ENBREL [Suspect]
     Active Substance: ETANERCEPT
     Route: 065
  229. DACLIZUMAB [Suspect]
     Active Substance: DACLIZUMAB
     Indication: TRANSPLANT
     Route: 042
  230. ANTITHYMOCYTE IMMUNOGLOBULIN (RABBIT) [Suspect]
     Active Substance: LAPINE T-LYMPHOCYTE IMMUNE GLOBULIN
     Route: 005
  231. TACROLIMUS. [Suspect]
     Active Substance: TACROLIMUS
     Indication: TRANSPLANT
     Route: 048
  232. TACROLIMUS. [Suspect]
     Active Substance: TACROLIMUS
     Route: 048
  233. TACROLIMUS. [Suspect]
     Active Substance: TACROLIMUS
     Route: 065
  234. PROGRAF [Suspect]
     Active Substance: TACROLIMUS
     Route: 048
  235. PROGRAF [Suspect]
     Active Substance: TACROLIMUS
     Route: 048
  236. PROGRAF [Suspect]
     Active Substance: TACROLIMUS
     Route: 048
  237. PROGRAF [Suspect]
     Active Substance: TACROLIMUS
     Route: 048
  238. PROGRAF [Suspect]
     Active Substance: TACROLIMUS
     Route: 048
  239. PROGRAF [Suspect]
     Active Substance: TACROLIMUS
     Route: 048
  240. PROGRAF [Suspect]
     Active Substance: TACROLIMUS
     Route: 048
  241. PROGRAF [Suspect]
     Active Substance: TACROLIMUS
     Route: 048
  242. ANTILYMPHOCYTE IMMUNOGLOBULIN (HORSE) [Suspect]
     Active Substance: EQUINE THYMOCYTE IMMUNE GLOBULIN
     Route: 065
  243. MYCOPHENOLATE [Suspect]
     Active Substance: MYCOPHENOLIC ACID
     Route: 065
  244. MYCOPHENOLATE [Suspect]
     Active Substance: MYCOPHENOLIC ACID
     Route: 048
  245. CELLCEPT [Suspect]
     Active Substance: MYCOPHENOLATE MOFETIL\MYCOPHENOLATE MOFETIL HYDROCHLORIDE
     Indication: PRODUCT USED FOR UNKNOWN INDICATION
     Route: 065
  246. MYCOPHENOLATE MOFETIL. [Suspect]
     Active Substance: MYCOPHENOLATE MOFETIL
     Indication: TRANSPLANT
     Route: 065
  247. MYCOPHENOLATE MOFETIL. [Suspect]
     Active Substance: MYCOPHENOLATE MOFETIL
     Route: 048
  248. INFLIXIMAB [Suspect]
     Active Substance: INFLIXIMAB
     Indication: PRODUCT USED FOR UNKNOWN INDICATION
     Route: 042
  249. ANTITHYMOCYTE IMMUNOGLOBULIN (RABBIT) [Suspect]
     Active Substance: LAPINE T-LYMPHOCYTE IMMUNE GLOBULIN
     Route: 065

REACTIONS (18)
  - Pneumonia [Not Recovered/Not Resolved]
  - Product use issue [Not Recovered/Not Resolved]
  - Transplant dysfunction [Not Recovered/Not Resolved]
  - Ovarian cyst [Not Recovered/Not Resolved]
  - Alopecia [Not Recovered/Not Resolved]
  - Transplant rejection [Not Recovered/Not Resolved]
  - Overdose [Not Recovered/Not Resolved]
  - Rheumatoid arthritis [Not Recovered/Not Resolved]
  - Acne [Not Recovered/Not Resolved]
  - Pain [Not Recovered/Not Resolved]
  - Liver function test abnormal [Not Recovered/Not Resolved]
  - Drug ineffective [Not Recovered/Not Resolved]
  - Condition aggravated [Not Recovered/Not Resolved]
  - Sleep disorder due to general medical condition, insomnia type [Not Recovered/Not Resolved]
  - Loss of personal independence in daily activities [Not Recovered/Not Resolved]
  - Incorrect route of product administration [Not Recovered/Not Resolved]
  - Product use in unapproved indication [Unknown]
  - Off label use [Unknown]
